FAERS Safety Report 6100362-3 (Version None)
Quarter: 2009Q1

REPORT INFORMATION
  Report Type: 
  Country: None (occurrence: None)
  Receive Date: 20090226
  Receipt Date: 20090213
  Transmission Date: 20090719
  Serious: Yes (Hospitalization)
  Sender: FDA-Public Use
  Company Number: 232406K08USA

PATIENT
  Age: 57 Year
  Sex: Female
  Weight: 73 kg

DRUGS (13)
  1. REBIF [Suspect]
     Indication: MULTIPLE SCLEROSIS
     Dosage: 44 MCG, 3 IN 1 WEEKS, SUBCUTANEOUS; 22 MCG, 3 IN 1 WEEKS, SUBCUTANEOUS
     Route: 058
     Dates: start: 20081001, end: 20081031
  2. REBIF [Suspect]
     Indication: MULTIPLE SCLEROSIS
     Dosage: 44 MCG, 3 IN 1 WEEKS, SUBCUTANEOUS; 22 MCG, 3 IN 1 WEEKS, SUBCUTANEOUS
     Route: 058
     Dates: start: 20090105, end: 20090114
  3. WELLBUTRIN SR [Concomitant]
  4. PROVIGIL [Concomitant]
  5. SYNTHROID [Concomitant]
  6. DETROL LA [Concomitant]
  7. PREVACID [Concomitant]
  8. TIZANIDINE HCL [Concomitant]
  9. AMITRIPTYLINE (AMITRIPTYLINE 000002201/) [Concomitant]
  10. TRAZODONE HCL [Concomitant]
  11. MULTIVITAMIN [Concomitant]
  12. SENOKOT (SENNA ALEXANDRINA) [Concomitant]
  13. METAMUCIL (PLANTAGO OVATA) [Concomitant]

REACTIONS (6)
  - ABASIA [None]
  - BLOOD DISORDER [None]
  - DIVERTICULITIS [None]
  - INFECTION [None]
  - PULMONARY EMBOLISM [None]
  - PULMONARY OEDEMA [None]
